FAERS Safety Report 6151669-5 (Version None)
Quarter: 2009Q2

REPORT INFORMATION
  Report Type: 
  Country: None (occurrence: None)
  Receive Date: 20090410
  Receipt Date: 20090409
  Transmission Date: 20091009
  Serious: Yes (Hospitalization)
  Sender: FDA-Public Use
  Company Number: AT-EISAI MEDICAL RESEARCH-E2020-04426-SPO-AT

PATIENT
  Age: 81 Year
  Sex: Male
  Weight: 55 kg

DRUGS (6)
  1. ARICEPT [Suspect]
     Indication: DEMENTIA
     Route: 048
     Dates: start: 20080101, end: 20090318
  2. DOMPERIDON [Interacting]
     Indication: GASTRECTOMY
     Route: 048
     Dates: start: 20070101, end: 20090318
  3. ALLOSTAD [Concomitant]
     Route: 048
  4. LANSOBENE [Concomitant]
     Route: 048
  5. ASPIRIN [Concomitant]
     Route: 048
  6. LISINOPRIL [Concomitant]

REACTIONS (2)
  - DRUG INTERACTION [None]
  - SINUS BRADYCARDIA [None]
